FAERS Safety Report 11531673 (Version 1)
Quarter: 2015Q3

REPORT INFORMATION
  Report Type: Spontaneous
  Country: US (occurrence: US)
  Receive Date: 20150903
  Receipt Date: 20150903
  Transmission Date: 20151125
  Serious: No
  Sender: FDA-Public Use
  Company Number: US-ELI_LILLY_AND_COMPANY-US201110007387

PATIENT
  Age: 45 Year
  Sex: Male

DRUGS (4)
  1. HUMALOG [Suspect]
     Active Substance: INSULIN LISPRO
     Indication: DIABETES MELLITUS
     Dosage: 80 U, UNKNOWN
     Dates: start: 2005
  2. HUMALOG [Suspect]
     Active Substance: INSULIN LISPRO
     Dosage: UNK, PRN
     Dates: start: 20110629
  3. HUMALOG [Suspect]
     Active Substance: INSULIN LISPRO
     Dosage: 12 U, UNKNOWN
  4. HUMALOG [Suspect]
     Active Substance: INSULIN LISPRO
     Dosage: 5 U, BID
     Dates: start: 20110629

REACTIONS (28)
  - Pain in extremity [Unknown]
  - Peripheral swelling [Unknown]
  - Malaise [Unknown]
  - Erythema [Unknown]
  - Somnolence [Unknown]
  - Dyspepsia [Unknown]
  - Drug ineffective [Unknown]
  - Renal disorder [Unknown]
  - Neuropathy peripheral [Unknown]
  - Blood pressure increased [Unknown]
  - Fatigue [Unknown]
  - Insomnia [Unknown]
  - Faeces hard [Unknown]
  - Chest pain [Unknown]
  - Pruritus [Unknown]
  - Stress [Unknown]
  - Paraesthesia [Unknown]
  - Blood creatinine increased [Unknown]
  - Anxiety [Unknown]
  - Insulin resistance [Unknown]
  - Pain [Unknown]
  - Depression [Unknown]
  - Arthralgia [Unknown]
  - Abdominal pain [Unknown]
  - Inflammation [Unknown]
  - Eating disorder [Unknown]
  - Haematochezia [Unknown]
  - Angina pectoris [Unknown]

NARRATIVE: CASE EVENT DATE: 201108
